FAERS Safety Report 8358509-4 (Version None)
Quarter: 2012Q2

REPORT INFORMATION
  Report Type: 
  Country: None (occurrence: None)
  Receive Date: 20120514
  Receipt Date: 20120501
  Transmission Date: 20120825
  Serious: Yes (Death, Hospitalization)
  Sender: FDA-Public Use
  Company Number: US-ACTELION-A-NJ2011-50896

PATIENT

DRUGS (3)
  1. EPOPROSTENOL SODIUM [Suspect]
     Indication: PULMONARY ARTERIAL HYPERTENSION
     Dosage: 8 NG/KG, PER MIN
     Route: 041
     Dates: start: 20110211, end: 20111118
  2. ADCIRCA [Concomitant]
  3. COUMADIN [Concomitant]

REACTIONS (12)
  - FLUID RETENTION [None]
  - SWELLING [None]
  - SEPTIC SHOCK [None]
  - URINARY TRACT INFECTION [None]
  - DYSPNOEA [None]
  - ARRHYTHMIA [None]
  - SPEECH DISORDER [None]
  - OEDEMA PERIPHERAL [None]
  - CARDIAC FAILURE [None]
  - KLEBSIELLA BACTERAEMIA [None]
  - OEDEMA [None]
  - FATIGUE [None]
